FAERS Safety Report 6845065-2 (Version None)
Quarter: 2010Q3

REPORT INFORMATION
  Report Type: 
  Country: None (occurrence: None)
  Receive Date: 20100715
  Receipt Date: 20070817
  Transmission Date: 20110219
  Serious: No
  Sender: FDA-Public Use
  Company Number: US-PFIZER INC-2007067767

PATIENT
  Age: 79 Year
  Sex: Male
  Weight: 100 kg

DRUGS (6)
  1. CHANTIX [Suspect]
     Indication: SMOKING CESSATION THERAPY
     Dates: start: 20070501
  2. PAXIL [Concomitant]
  3. ACETYLSALICYLIC ACID [Concomitant]
  4. VALPARIN [Concomitant]
  5. DIGITEK [Concomitant]
  6. ALL OTHER THERAPEUTIC PRODUCTS [Concomitant]

REACTIONS (1)
  - HEART RATE INCREASED [None]
